FAERS Safety Report 6422129-9 (Version None)
Quarter: 2009Q4

REPORT INFORMATION
  Report Type: 
  Country: None (occurrence: None)
  Receive Date: 20091029
  Receipt Date: 20091029
  Transmission Date: 20100525
  Serious: Yes (Hospitalization)
  Sender: FDA-Public Use
  Company Number: None

PATIENT
  Age: 64 Year

DRUGS (1)
  1. PSEUDOEPHEDRINE HCL [Suspect]
     Indication: SINUS CONGESTION
     Dosage: 30 MG PRN PO
     Route: 048
     Dates: start: 20091024, end: 20091024

REACTIONS (2)
  - HYPERTENSION [None]
  - NASAL CONGESTION [None]
